FAERS Safety Report 13422565 (Version 1)
Quarter: 2017Q2

REPORT INFORMATION
  Report Type: Spontaneous
  Country: US (occurrence: US)
  Receive Date: 20170407
  Receipt Date: 20170407
  Transmission Date: 20170830
  Serious: Yes (Hospitalization)
  Sender: FDA-Public Use
  Company Number: None

PATIENT
  Sex: Female

DRUGS (1)
  1. IBRANCE [Suspect]
     Active Substance: PALBOCICLIB
     Indication: BREAST CANCER FEMALE
     Dosage: 1 CAPSULE (75MG) DAILY FOR 21 DAYS, THEN OFF 7 DAYS ORAL
     Route: 048
     Dates: start: 20161112

REACTIONS (3)
  - Nausea [None]
  - Diarrhoea [None]
  - Hip fracture [None]
